FAERS Safety Report 8448008-3 (Version None)
Quarter: 2012Q2

REPORT INFORMATION
  Report Type: 
  Country: None (occurrence: None)
  Receive Date: 20120619
  Receipt Date: 20120613
  Transmission Date: 20120825
  Serious: Yes (Other)
  Sender: FDA-Public Use
  Company Number: ES-AMGEN-ESPSP2012031712

PATIENT
  Age: 68 Year
  Sex: Female

DRUGS (1)
  1. PROLIA [Suspect]
     Indication: PRODUCT USED FOR UNKNOWN INDICATION
     Dosage: UNK
     Route: 058
     Dates: start: 20120502, end: 20120502

REACTIONS (9)
  - PRURITUS [None]
  - HYPERSENSITIVITY [None]
  - URTICARIA [None]
  - RASH [None]
  - TACHYCARDIA [None]
  - ARTHRALGIA [None]
  - MUSCULOSKELETAL PAIN [None]
  - MUSCLE FATIGUE [None]
  - DIARRHOEA [None]
